FAERS Safety Report 16339825 (Version 1)
Quarter: 2019Q2

REPORT INFORMATION
  Report Type: Spontaneous
  Country: US (occurrence: US)
  Receive Date: 20190521
  Receipt Date: 20190521
  Transmission Date: 20190711
  Serious: No
  Sender: FDA-Public Use
  Company Number: US-ACTELION-A-NJ2019-189927

PATIENT
  Age: 84 Year
  Sex: Female

DRUGS (2)
  1. OPSUMIT [Suspect]
     Active Substance: MACITENTAN
     Indication: PULMONARY ARTERIAL HYPERTENSION
     Dosage: 10 MG, QD
     Route: 048
     Dates: start: 201904
  2. POTASSIUM [Concomitant]
     Active Substance: POTASSIUM
     Dosage: UNK

REACTIONS (7)
  - Insomnia [Recovering/Resolving]
  - Cough [Recovering/Resolving]
  - Nasal congestion [Unknown]
  - Unevaluable event [Recovering/Resolving]
  - Dizziness [Not Recovered/Not Resolved]
  - Joint swelling [Recovering/Resolving]
  - Oropharyngeal pain [Recovering/Resolving]

NARRATIVE: CASE EVENT DATE: 20190413
